FAERS Safety Report 16336792 (Version 1)
Quarter: 2019Q2

REPORT INFORMATION
  Report Type: Spontaneous
  Country: US (occurrence: US)
  Receive Date: 20190520
  Receipt Date: 20190520
  Transmission Date: 20190711
  Serious: Yes (Hospitalization)
  Sender: FDA-Public Use
  Company Number: None

PATIENT
  Age: 58 Year
  Sex: Female
  Weight: 101.25 kg

DRUGS (2)
  1. VENLAFAXINE HYDROCHLORIDE EXTENDED-RELEASE [Suspect]
     Active Substance: VENLAFAXINE HYDROCHLORIDE
     Indication: ANXIETY
     Dosage: ?          QUANTITY:90 CAPSULE(S);?
     Route: 048
     Dates: start: 20190510, end: 20190512
  2. VENLAFAXINE HYDROCHLORIDE EXTENDED-RELEASE [Suspect]
     Active Substance: VENLAFAXINE HYDROCHLORIDE
     Indication: HOT FLUSH
     Dosage: ?          QUANTITY:90 CAPSULE(S);?
     Route: 048
     Dates: start: 20190510, end: 20190512

REACTIONS (3)
  - Product substitution issue [None]
  - Panic attack [None]
  - Anxiety [None]

NARRATIVE: CASE EVENT DATE: 20190512
